FAERS Safety Report 14843731 (Version 3)
Quarter: 2018Q2

REPORT INFORMATION
  Report Type: Report from Study
  Country: DE (occurrence: DE)
  Receive Date: 20180503
  Receipt Date: 20180529
  Transmission Date: 20180711
  Serious: Yes (Hospitalization, Other)
  Sender: FDA-Public Use
  Company Number: DE-PFIZER INC-2018101159

PATIENT
  Age: 65 Year
  Sex: Male
  Weight: 95 kg

DRUGS (4)
  1. VARGATEF [Suspect]
     Active Substance: NINTEDANIB
     Indication: LUNG ADENOCARCINOMA
     Dosage: UNK
  2. VARGATEF [Suspect]
     Active Substance: NINTEDANIB
     Dosage: 400 MG, 1X/DAY
     Route: 048
     Dates: start: 20180126, end: 20180301
  3. DOCETAXEL. [Suspect]
     Active Substance: DOCETAXEL
     Dosage: 75 MG/M2, DAILY
     Route: 042
     Dates: start: 20180125, end: 20180215
  4. DOCETAXEL. [Suspect]
     Active Substance: DOCETAXEL
     Indication: LUNG ADENOCARCINOMA
     Dosage: UNK

REACTIONS (3)
  - Portal vein thrombosis [Recovered/Resolved]
  - Oedema peripheral [Recovered/Resolved]
  - Pulmonary embolism [Recovered/Resolved]

NARRATIVE: CASE EVENT DATE: 20180208
